FAERS Safety Report 12668731 (Version 6)
Quarter: 2016Q3

REPORT INFORMATION
  Report Type: Report from Study
  Country: RO (occurrence: RO)
  Receive Date: 20160819
  Receipt Date: 20160929
  Transmission Date: 20161109
  Serious: Yes (Death, Life-Threatening, Hospitalization, Disabling, Other)
  Sender: FDA-Public Use
  Company Number: RO-AMGEN-ROUCT2016108082

PATIENT
  Age: 66 Year
  Sex: Female

DRUGS (12)
  1. EPOETIN ALFA [Concomitant]
     Active Substance: ERYTHROPOIETIN
     Dosage: 40000 IU, UNK
     Route: 058
     Dates: start: 20160729, end: 20160812
  2. JANUMET [Concomitant]
     Active Substance: METFORMIN HYDROCHLORIDE\SITAGLIPTIN PHOSPHATE
     Dosage: 50 MG, UNK
     Route: 048
     Dates: start: 201511, end: 20160817
  3. ATACAND [Concomitant]
     Active Substance: CANDESARTAN CILEXETIL
     Dosage: 8 MG, UNK
     Route: 048
     Dates: start: 200611, end: 20160817
  4. ASPENTER [Concomitant]
     Active Substance: ASPIRIN
     Dosage: 75 MG, UNK
     Route: 048
     Dates: start: 201511, end: 20160623
  5. FENTANYL. [Concomitant]
     Active Substance: FENTANYL
     Dosage: 50 MCG, UNK
     Route: 062
     Dates: start: 201605, end: 20160822
  6. CARFILZOMIB [Suspect]
     Active Substance: CARFILZOMIB
     Indication: PLASMA CELL MYELOMA
     Dosage: 43 MG, PER CHEMO REGIM
     Route: 042
     Dates: start: 20160714, end: 20160812
  7. LEVEMIR [Concomitant]
     Active Substance: INSULIN DETEMIR
     Dosage: 26 IU, UNK
     Route: 058
     Dates: start: 201511, end: 20160822
  8. LEVOFLOXACIN. [Concomitant]
     Active Substance: LEVOFLOXACIN
     Dosage: 500 MG, UNK
     Route: 048
     Dates: start: 20160729, end: 20160815
  9. INDAPAMID [Concomitant]
     Active Substance: INDAPAMIDE
     Dosage: 1.5 MG, UNK
     Route: 048
     Dates: start: 2006, end: 20160817
  10. ACICLOVIR [Concomitant]
     Active Substance: ACYCLOVIR
     Dosage: 200 MG, UNK
     Route: 048
     Dates: start: 20160713, end: 20160817
  11. DEXAMETHASONE. [Suspect]
     Active Substance: DEXAMETHASONE
     Indication: PLASMA CELL MYELOMA
     Dosage: 40 MG, PER CHEMO REGIM
     Route: 048
     Dates: start: 20160714, end: 20160811
  12. PANTOPRAZOLE [Concomitant]
     Active Substance: PANTOPRAZOLE SODIUM
     Dosage: 40 MG, UNK
     Dates: start: 20160713, end: 20160815

REACTIONS (4)
  - Sepsis [Fatal]
  - Wound infection bacterial [Not Recovered/Not Resolved]
  - Platelet count decreased [Recovered/Resolved]
  - Rectal haemorrhage [Recovered/Resolved]

NARRATIVE: CASE EVENT DATE: 20160815
